FAERS Safety Report 9580677 (Version 1)
Quarter: 2013Q3

REPORT INFORMATION
  Report Type: Spontaneous
  Country: US (occurrence: None)
  Receive Date: 20130916
  Receipt Date: 20130916
  Transmission Date: 20140515
  Serious: Yes (Other)
  Sender: FDA-Public Use
  Company Number: JPI-P-030665

PATIENT
  Age: 56 Year
  Sex: Female
  Weight: 67.13 kg

DRUGS (14)
  1. XYREM (500 MILLIGRAM/MILLILITERS, SOLUTION) (SODIUM OXYBATE) [Suspect]
     Indication: NARCOLEPSY
     Dosage: 4.45 GM (2.25 GM, 2 IN 1 D), ORAL
     Route: 048
     Dates: start: 20130313, end: 201303
  2. MIDODRINE [Concomitant]
  3. DURAGESIC (FENTANYL) [Concomitant]
  4. WELLBUTRIN (BUPROPION HCL) [Concomitant]
  5. PAXIL (PAROXETINE HYDROCHLORIDE) [Concomitant]
  6. LOVAZA (OMEGA-3-ACID ETHYL ESTERS) [Concomitant]
  7. CARAFATE (SUCRALFATE) TABLET, 1G [Concomitant]
  8. KLOR-CON (POTASSIUM CHLORIDE) [Concomitant]
  9. VITAMIN D [Concomitant]
  10. AMITIXA (LUBIPROSTONE) [Concomitant]
  11. SENNA [Concomitant]
  12. NARCO (HYDROCHLORIDE BITARTRATE/ACETAMINOPHEN) [Concomitant]
  13. TOMPAMAX (TOPIRAMATE) [Concomitant]
  14. PEPCID (FAMOTIDINE) [Concomitant]

REACTIONS (12)
  - Blood pressure increased [None]
  - Condition aggravated [None]
  - Dysphonia [None]
  - Heart rate increased [None]
  - Dry skin [None]
  - Pruritus [None]
  - Blood pressure decreased [None]
  - Dry mouth [None]
  - Headache [None]
  - Diarrhoea [None]
  - Tremor [None]
  - Lip dry [None]
